FAERS Safety Report 24700958 (Version 1)
Quarter: 2024Q4

REPORT INFORMATION
  Report Type: Spontaneous
  Country: FR (occurrence: FR)
  Receive Date: 20241205
  Receipt Date: 20241205
  Transmission Date: 20250115
  Serious: Yes (Hospitalization, Other)
  Sender: AIRGAS
  Company Number: FR-AFSSAPS-AVTO2024000174

PATIENT
  Sex: Female

DRUGS (2)
  1. NITROUS OXIDE [Suspect]
     Active Substance: NITROUS OXIDE
     Indication: Product used for unknown indication
     Dates: end: 20241103
  2. PREGABALIN [Suspect]
     Active Substance: PREGABALIN
     Dates: end: 20241103

REACTIONS (6)
  - Tremor [Recovering/Resolving]
  - Subacute combined cord degeneration [Recovering/Resolving]
  - Hyperhomocysteinaemia [Recovered/Resolved]
  - Paraparesis [Recovering/Resolving]
  - Urinary incontinence [Recovering/Resolving]
  - Anal incontinence [Recovering/Resolving]

NARRATIVE: CASE EVENT DATE: 20240501
